FAERS Safety Report 23302297 (Version 1)
Quarter: 2023Q4

REPORT INFORMATION
  Report Type: Spontaneous
  Country: US (occurrence: US)
  Receive Date: 20231215
  Receipt Date: 20231215
  Transmission Date: 20240110
  Serious: Yes (Other)
  Sender: FDA-Public Use
  Company Number: US-Calliditas-2023CAL01606

PATIENT
  Age: 53 Year
  Sex: Male

DRUGS (1)
  1. TARPEYO [Suspect]
     Active Substance: BUDESONIDE
     Indication: IgA nephropathy
     Route: 048
     Dates: start: 20230328

REACTIONS (1)
  - Deafness transitory [Recovered/Resolved]

NARRATIVE: CASE EVENT DATE: 20231101
